FAERS Safety Report 4286300-7 (Version None)
Quarter: 2004Q1

REPORT INFORMATION
  Report Type: 
  Country: None (occurrence: None)
  Receive Date: 20040115
  Receipt Date: 20021219
  Transmission Date: 20041129
  Serious: Yes (Hospitalization)
  Sender: FDA-Public Use
  Company Number: NSADSS2002046578

PATIENT
  Age: 60 Year
  Sex: Female

DRUGS (1)
  1. DOXIL [Suspect]
     Indication: HEPATIC NEOPLASM MALIGNANT
     Dosage: 85 MG, INTRAVENOUS DRIP
     Route: 041
     Dates: start: 20021126, end: 20021126

REACTIONS (1)
  - ASCITES [None]
